FAERS Safety Report 11807967 (Version 1)
Quarter: 2015Q4

REPORT INFORMATION
  Report Type: Spontaneous
  Country: GB (occurrence: GB)
  Receive Date: 20151207
  Receipt Date: 20151207
  Transmission Date: 20160305
  Serious: Yes (Other)
  Sender: FDA-Public Use
  Company Number: GB-COL_21419_2015

PATIENT
  Age: 54 Year
  Sex: Female
  Weight: 58 kg

DRUGS (3)
  1. ESTRADIOL AND NORETHINDRONE ACETATE [Suspect]
     Active Substance: ESTRADIOL\NORETHINDRONE ACETATE
     Indication: HORMONE REPLACEMENT THERAPY
     Dosage: NI/NI/
     Dates: start: 20151112, end: 20151114
  2. DAKTARIN [Suspect]
     Active Substance: MICONAZOLE NITRATE
     Indication: TONGUE COATED
     Dosage: NI/NI/
     Route: 061
     Dates: start: 20151112, end: 20151114
  3. CHLORHEXIDINE DIGLUCONATE [Suspect]
     Active Substance: CHLORHEXIDINE
     Indication: ORAL PAIN
     Dosage: NI/NI/
     Route: 048
     Dates: start: 20151112, end: 20151114

REACTIONS (3)
  - Swelling face [Recovering/Resolving]
  - Eyelid oedema [Recovering/Resolving]
  - Erythema [Recovering/Resolving]

NARRATIVE: CASE EVENT DATE: 20151112
